FAERS Safety Report 14334329 (Version 7)
Quarter: 2019Q4

REPORT INFORMATION
  Report Type: Spontaneous
  Country: GB (occurrence: GB)
  Receive Date: 20171228
  Receipt Date: 20191104
  Transmission Date: 20200122
  Serious: Yes (Hospitalization, Other)
  Sender: FDA-Public Use
  Company Number: GB-PFIZER INC-2017547734

PATIENT
  Age: 11 Year
  Sex: Male
  Weight: 48 kg

DRUGS (6)
  1. COLECALCIFEROL [Concomitant]
     Active Substance: CHOLECALCIFEROL
     Dosage: UNK
  2. VITAMIN D [COLECALCIFEROL] [Concomitant]
     Active Substance: CHOLECALCIFEROL
     Indication: PROPHYLAXIS
  3. ZOLEDRONIC ACID [Suspect]
     Active Substance: ZOLEDRONIC ACID
     Indication: SPINAL FRACTURE
     Dosage: 1.22 MG, UNK
     Route: 042
     Dates: start: 20171201, end: 20171201
  4. DEFLAZACORT [Concomitant]
     Active Substance: DEFLAZACORT
     Indication: DUCHENNE MUSCULAR DYSTROPHY
     Dosage: 18 MG, 1X/DAY
  5. CALCIUM [Concomitant]
     Active Substance: CALCIUM
     Indication: PROPHYLAXIS
     Dosage: UNK
  6. ZOLEDRONIC ACID [Suspect]
     Active Substance: ZOLEDRONIC ACID
     Indication: SPINAL FRACTURE
     Dosage: 0.025 MG/KG, HALF DOSE

REACTIONS (16)
  - Product use issue [Recovered/Resolved]
  - Off label use [Recovered/Resolved]
  - Tachypnoea [Unknown]
  - Hypocalcaemia [Recovered/Resolved]
  - Hypophosphataemia [Recovered/Resolved]
  - Inflammation [Recovered/Resolved]
  - Chromaturia [Unknown]
  - Muscle spasms [Unknown]
  - Product use in unapproved indication [Recovered/Resolved]
  - Malaise [Unknown]
  - Pyrexia [Unknown]
  - Rhabdomyolysis [Recovered/Resolved]
  - Systemic inflammatory response syndrome [Recovered/Resolved]
  - Myoglobinuria [Recovered/Resolved]
  - Blood urine present [Unknown]
  - Tachycardia [Unknown]

NARRATIVE: CASE EVENT DATE: 20171202
